FAERS Safety Report 13001378 (Version 2)
Quarter: 2017Q1

REPORT INFORMATION
  Report Type: Spontaneous
  Country: US (occurrence: US)
  Receive Date: 20161206
  Receipt Date: 20170116
  Transmission Date: 20170428
  Serious: No
  Sender: FDA-Public Use
  Company Number: US-PFIZER INC-2016554284

PATIENT
  Age: 79 Year
  Sex: Male

DRUGS (2)
  1. BUMETANIDE. [Suspect]
     Active Substance: BUMETANIDE
     Indication: DIURETIC THERAPY
     Dosage: 10 MG, DAILY
     Dates: start: 20070829, end: 20080308
  2. BUMETANIDE. [Suspect]
     Active Substance: BUMETANIDE
     Dosage: UNK
     Dates: start: 2009, end: 20100216

REACTIONS (2)
  - Hypotension [Unknown]
  - Weight decreased [Unknown]
